FAERS Safety Report 9752596 (Version 1)
Quarter: 2013Q4

REPORT INFORMATION
  Report Type: Spontaneous
  Country: US (occurrence: US)
  Receive Date: 20131213
  Receipt Date: 20131213
  Transmission Date: 20140711
  Serious: Yes (Other)
  Sender: FDA-Public Use
  Company Number: US-ELI_LILLY_AND_COMPANY-US201312002721

PATIENT
  Sex: Female

DRUGS (6)
  1. HUMULIN NPH [Suspect]
     Indication: DIABETES MELLITUS
     Dosage: UNK
     Route: 065
  2. INSULIN HUMAN [Suspect]
     Indication: DIABETES MELLITUS
     Dosage: UNK
     Route: 065
  3. ILETIN BEEF/PORK LENTE [Suspect]
     Indication: DIABETES MELLITUS
     Dosage: UNK
     Route: 065
  4. ILETIN BEEF/PORK ULTRALENTE [Suspect]
     Indication: DIABETES MELLITUS
     Dosage: UNK
     Route: 065
  5. HUMALOG LISPRO [Suspect]
     Indication: DIABETES MELLITUS
     Dosage: UNK
     Route: 065
  6. HUMALOG LISPRO [Suspect]
     Indication: DIABETES MELLITUS
     Dosage: UNK
     Route: 058

REACTIONS (6)
  - Blindness [Unknown]
  - Cerebrovascular accident [Unknown]
  - Neoplasm [Unknown]
  - Blood glucose increased [Unknown]
  - Scar [Not Recovered/Not Resolved]
  - Blood glucose fluctuation [Unknown]
